FAERS Safety Report 7100105 (Version 2)
Quarter: 2014Q3

REPORT INFORMATION
  Report Type: Spontaneous
  Country: US (occurrence: US)
  Receive Date: 20090828
  Receipt Date: 20140822
  Transmission Date: 20150326
  Serious: Yes (Hospitalization, Other)
  Sender: FDA-Public Use
  Company Number: US-ELI_LILLY_AND_COMPANY-US200705000947

PATIENT
  Age: 41 Year
  Sex: Female

DRUGS (2)
  1. ZYPREXA [Suspect]
     Active Substance: OLANZAPINE
     Indication: BIPOLAR DISORDER
     Dosage: 30 MG, UNKNOWN
     Route: 065
     Dates: start: 1997, end: 1999
  2. ZYPREXA [Suspect]
     Active Substance: OLANZAPINE
     Indication: SCHIZOAFFECTIVE DISORDER
     Dosage: 1 DF, UNKNOWN
     Dates: start: 2003

REACTIONS (24)
  - Loss of consciousness [Unknown]
  - Diabetes mellitus [Unknown]
  - Renal failure [Unknown]
  - Hypotension [Unknown]
  - Ketonuria [Unknown]
  - Abdominal pain [Unknown]
  - Prescribed overdose [Unknown]
  - Aptyalism [Unknown]
  - Blood cholesterol increased [Unknown]
  - Cholelithiasis [Unknown]
  - Diabetic coma [Unknown]
  - Pancreatitis [Unknown]
  - Diabetic ketoacidosis [Unknown]
  - Diabetic complication [Unknown]
  - Blood triglycerides increased [Unknown]
  - Headache [Unknown]
  - Dental caries [Unknown]
  - Metabolic disorder [Unknown]
  - Hypertension [Unknown]
  - Jejunal ulcer [Unknown]
  - Obesity [Unknown]
  - Mastication disorder [Unknown]
  - Weight increased [Unknown]
  - Acetonaemia [Unknown]

NARRATIVE: CASE EVENT DATE: 1997
